FAERS Safety Report 18213419 (Version 2)
Quarter: 2020Q4

REPORT INFORMATION
  Report Type: Spontaneous
  Country: US (occurrence: US)
  Receive Date: 20200831
  Receipt Date: 20201103
  Transmission Date: 20210113
  Serious: Yes (Other)
  Sender: FDA-Public Use
  Company Number: US-BAYER-2020-179831

PATIENT
  Age: 9 Year
  Sex: Male
  Weight: 31.75 kg

DRUGS (7)
  1. KOVALTRY [Suspect]
     Active Substance: ANTIHEMOPHILIC FACTOR, HUMAN RECOMBINANT
     Indication: FACTOR VIII DEFICIENCY
     Dosage: 1250 U (+/-10%) FOR LIFE/LIMB THREATENNIG AND CALL HTC
     Route: 042
     Dates: start: 201807
  2. KOVALTRY [Suspect]
     Active Substance: ANTIHEMOPHILIC FACTOR, HUMAN RECOMBINANT
     Indication: FACTOR VIII DEFICIENCY
     Dosage: 1 DF, ONCE TO TREAT NOSEBLEED
     Dates: start: 202002, end: 202002
  3. KOVALTRY [Suspect]
     Active Substance: ANTIHEMOPHILIC FACTOR, HUMAN RECOMBINANT
     Indication: FACTOR VIII DEFICIENCY
     Dosage: 1250 U (+/-10%)EVERY MONDAY, WEDNESDAY, FRIDAY
     Route: 040
     Dates: start: 201807
  4. AMICAR [Concomitant]
     Active Substance: AMINOCAPROIC ACID
     Dosage: 4 ML, QID
     Route: 048
  5. KOVALTRY [Suspect]
     Active Substance: ANTIHEMOPHILIC FACTOR, HUMAN RECOMBINANT
     Indication: PROPHYLAXIS
     Dosage: 1250 U (+/-10%) FOR ROUTINE BLEEDING
     Route: 042
     Dates: start: 201807
  6. KOVALTRY [Suspect]
     Active Substance: ANTIHEMOPHILIC FACTOR, HUMAN RECOMBINANT
     Indication: FACTOR VIII DEFICIENCY
     Dosage: 1 DF, ONCE TO TREAT LEFT ANKLE BLEED
     Dates: start: 202006, end: 202006
  7. DEXMETHYLPHENIDATE [Concomitant]
     Active Substance: DEXMETHYLPHENIDATE HYDROCHLORIDE
     Dosage: 10 MG, OM
     Route: 048

REACTIONS (3)
  - Haemarthrosis [Recovered/Resolved]
  - Haemarthrosis [Not Recovered/Not Resolved]
  - Epistaxis [Recovered/Resolved]

NARRATIVE: CASE EVENT DATE: 202002
